FAERS Safety Report 8271185-4 (Version None)
Quarter: 2012Q2

REPORT INFORMATION
  Report Type: 
  Country: None (occurrence: None)
  Receive Date: 20120410
  Receipt Date: 20120330
  Transmission Date: 20120825
  Serious: Yes (Other)
  Sender: FDA-Public Use
  Company Number: US-ROCHE-781902

PATIENT
  Sex: Female
  Weight: 59.02 kg

DRUGS (4)
  1. PROZAC [Concomitant]
  2. ACCUTANE [Suspect]
     Route: 065
  3. PROPRANOLOL [Concomitant]
  4. ACCUTANE [Suspect]
     Indication: ACNE
     Route: 065
     Dates: start: 20010508, end: 20010918

REACTIONS (5)
  - CROHN'S DISEASE [None]
  - PROCTITIS [None]
  - IRRITABLE BOWEL SYNDROME [None]
  - STRESS [None]
  - INFLAMMATORY BOWEL DISEASE [None]
